FAERS Safety Report 9275564 (Version 1)
Quarter: 2012Q4

REPORT INFORMATION
  Report Type: Spontaneous
  Country: IT (occurrence: None)
  Receive Date: 20121023
  Receipt Date: 20121023
  Transmission Date: 20130627
  Serious: Yes (Hospitalization)
  Sender: FDA-Public Use
  Company Number: GER/ITL/12/0026200

PATIENT
  Age: 64 Year
  Sex: Female

DRUGS (3)
  1. CITALOPRAM (CITALOPRAM) [Suspect]
     Indication: DEPRESSION
     Route: 048
     Dates: start: 20120804
  2. PANTOPANZOLE (PANTOPRAZOLE SODIUM SESQUIHYDRATE) [Concomitant]
  3. BLOPRESID (BLOPRESS PLUS) [Concomitant]

REACTIONS (4)
  - Convulsion [None]
  - Abdominal pain upper [None]
  - Arrhythmia [None]
  - Drug abuse [None]
